FAERS Safety Report 13745040 (Version 1)
Quarter: 2017Q3

REPORT INFORMATION
  Report Type: Spontaneous
  Country: US (occurrence: US)
  Receive Date: 20170711
  Receipt Date: 20170711
  Transmission Date: 20171127
  Serious: Yes (Hospitalization, Disabling, Other)
  Sender: FDA-Public Use
  Company Number: None

PATIENT
  Age: 55 Year
  Sex: Male
  Weight: 110.2 kg

DRUGS (1)
  1. LYRICA [Suspect]
     Active Substance: PREGABALIN
     Indication: NEURALGIA

REACTIONS (29)
  - Wheezing [None]
  - Lethargy [None]
  - Agitation [None]
  - Mouth ulceration [None]
  - Vision blurred [None]
  - Heart rate increased [None]
  - Rash [None]
  - Memory impairment [None]
  - Dehydration [None]
  - Dyskinesia [None]
  - Depression [None]
  - Irritability [None]
  - Dry mouth [None]
  - Gingival bleeding [None]
  - Panic attack [None]
  - Aggression [None]
  - Paraesthesia [None]
  - Hypothyroidism [None]
  - Weight increased [None]
  - Rhinorrhoea [None]
  - Mood altered [None]
  - Pain [None]
  - Disturbance in attention [None]
  - Suicidal ideation [None]
  - Diarrhoea [None]
  - Eye swelling [None]
  - Anxiety [None]
  - Restless legs syndrome [None]
  - Burning sensation [None]

NARRATIVE: CASE EVENT DATE: 20170327
